FAERS Safety Report 16540947 (Version 2)
Quarter: 2019Q3

REPORT INFORMATION
  Report Type: Report from Study
  Country: TR (occurrence: TR)
  Receive Date: 20190708
  Receipt Date: 20190806
  Transmission Date: 20191004
  Serious: Yes (Death, Hospitalization, Other)
  Sender: FDA-Public Use
  Company Number: TR-GILEAD-2019-0416727

PATIENT
  Age: 31 Year
  Sex: Male
  Weight: 73 kg

DRUGS (1)
  1. ELVITEGRAVIR/COBICISTAT/EMTRICITABINE/TENOFOVIR ALAFENAMIDE [Suspect]
     Active Substance: COBICISTAT\ELVITEGRAVIR\EMTRICITABINE\TENOFOVIR
     Indication: HIV INFECTION
     Route: 065

REACTIONS (3)
  - Mycobacterium avium complex infection [Fatal]
  - Pneumocystis jirovecii pneumonia [Recovered/Resolved]
  - Hypophagia [Fatal]

NARRATIVE: CASE EVENT DATE: 20180223
